FAERS Safety Report 7352427-6 (Version None)
Quarter: 2011Q1

REPORT INFORMATION
  Report Type: 
  Country: None (occurrence: None)
  Receive Date: 20110301
  Receipt Date: 20101101
  Transmission Date: 20110831
  Serious: Yes (Other)
  Sender: FDA-Public Use
  Company Number: 253641USA

PATIENT
  Sex: Female

DRUGS (1)
  1. NITROFURANTOIN [Suspect]
     Dosage: (100 MG)

REACTIONS (3)
  - PYREXIA [None]
  - DYSPNOEA [None]
  - PULMONARY FIBROSIS [None]
